FAERS Safety Report 19520030 (Version 4)
Quarter: 2021Q3

REPORT INFORMATION
  Report Type: Report from Study
  Country: KR (occurrence: KR)
  Receive Date: 20210712
  Receipt Date: 20210818
  Transmission Date: 20211014
  Serious: Yes (Hospitalization)
  Sender: FDA-Public Use
  Company Number: KR-ROCHE-2855330

PATIENT
  Age: 54 Year
  Sex: Male
  Weight: 55.2 kg

DRUGS (28)
  1. ATEZOLIZUMAB. [Suspect]
     Active Substance: ATEZOLIZUMAB
     Indication: OESOPHAGEAL CARCINOMA
     Route: 041
     Dates: start: 20210426
  2. FREEFOL?MCT [Concomitant]
     Indication: PROPHYLAXIS
     Route: 042
     Dates: start: 20210521, end: 20210521
  3. FURTMAN [Concomitant]
     Indication: DECREASED APPETITE
     Route: 042
     Dates: start: 20210619, end: 20210625
  4. FREAMINE III NOS [Concomitant]
     Active Substance: AMINO ACIDS
     Indication: DECREASED APPETITE
     Route: 042
     Dates: start: 20210421
  5. SMOFKABIVEN [Concomitant]
     Active Substance: AMINO ACIDS\DEXTROSE\ELECTROLYTES NOS\SOYBEAN OIL
     Route: 042
     Dates: start: 20210522, end: 20210620
  6. HEXAMEDINE [Concomitant]
     Dates: start: 20210607, end: 20210612
  7. HARTMANN GLUCOSE [Concomitant]
     Indication: DECREASED APPETITE
     Route: 042
     Dates: start: 20210521, end: 20210626
  8. TIROPA [Concomitant]
     Active Substance: TIROPRAMIDE
     Route: 048
     Dates: start: 20210522, end: 20210522
  9. TRESTAN [Concomitant]
     Indication: DECREASED APPETITE
     Dosage: 1 CAPSULE
     Route: 048
     Dates: start: 20210429, end: 20210517
  10. CISPLATIN. [Suspect]
     Active Substance: CISPLATIN
     Indication: OESOPHAGEAL CARCINOMA
     Dosage: DATE OF MOST RECENT DOSE 132 MG OF STUDY DRUG PRIOR TO SERIOUS ADVERSE EVENT (SAE): 07/JUN/2021
     Route: 042
     Dates: start: 20210426
  11. 5?FLUOROURACIL [Suspect]
     Active Substance: FLUOROURACIL
     Indication: OESOPHAGEAL CARCINOMA
     Dosage: DATE OF MOST RECENT DOSE 6600 MG OF STUDY DRUG PRIOR TO SAE:11/JUN/2021
     Route: 042
     Dates: start: 20210426
  12. FREAMINE III NOS [Concomitant]
     Active Substance: AMINO ACIDS
     Route: 042
     Dates: start: 20210519, end: 20210619
  13. AKYNZEO [Concomitant]
     Active Substance: NETUPITANT\PALONOSETRON HYDROCHLORIDE
     Indication: PREMEDICATION
     Dosage: 300/0.5MG
     Route: 048
     Dates: start: 20210426
  14. TYLENOL ER [Concomitant]
     Active Substance: ACETAMINOPHEN
     Indication: TOOTHACHE
  15. ACTIFED (SOUTH KOREA) [Concomitant]
     Route: 048
     Dates: start: 20210608, end: 20210611
  16. MORPHINE SULFATE. [Concomitant]
     Active Substance: MORPHINE SULFATE
     Route: 042
     Dates: start: 20210623, end: 20210623
  17. AKYNZEO [Concomitant]
     Active Substance: NETUPITANT\PALONOSETRON HYDROCHLORIDE
     Dosage: 300/0.5MG
     Route: 048
     Dates: start: 20210607, end: 20210607
  18. HEPARIN [Concomitant]
     Active Substance: HEPARIN SODIUM
     Dates: start: 20210409
  19. FREEFOL?MCT [Concomitant]
     Route: 042
     Dates: start: 20210524, end: 20210524
  20. TYLENOL ER [Concomitant]
     Active Substance: ACETAMINOPHEN
     Indication: DENTAL CARIES
     Route: 048
     Dates: start: 20210607, end: 20210607
  21. TRIDOL [Concomitant]
     Active Substance: TRAMADOL HYDROCHLORIDE
     Indication: HEADACHE
     Dosage: TRIDOL SOLUBLE
     Route: 048
     Dates: start: 20210610, end: 20210610
  22. BROPIUM [Concomitant]
     Route: 042
     Dates: start: 20210623, end: 20210623
  23. MAGNESIN (SOUTH KOREA) [Concomitant]
     Indication: PROPHYLAXIS
     Route: 042
     Dates: start: 20210621
  24. AKYNZEO [Concomitant]
     Active Substance: NETUPITANT\PALONOSETRON HYDROCHLORIDE
     Dosage: 300/0.5MG
     Route: 048
     Dates: start: 20210517, end: 20210517
  25. FREEFOL?MCT [Concomitant]
     Route: 042
     Dates: start: 20210623, end: 20210623
  26. MACPERAN [Concomitant]
     Active Substance: METOCLOPRAMIDE HYDROCHLORIDE
     Indication: NAUSEA
     Route: 042
     Dates: start: 20210429
  27. SMOFKABIVEN [Concomitant]
     Active Substance: AMINO ACIDS\DEXTROSE\ELECTROLYTES NOS\SOYBEAN OIL
     Indication: DECREASED APPETITE
     Dosage: 1500 1477ML(CENTRAL)
     Route: 042
     Dates: start: 20210621, end: 20210625
  28. FREEFOL?MCT [Concomitant]
     Route: 042
     Dates: start: 20210621, end: 20210621

REACTIONS (1)
  - Dysphagia [Recovered/Resolved]

NARRATIVE: CASE EVENT DATE: 20210613
